FAERS Safety Report 21728374 (Version 1)
Quarter: 2022Q4

REPORT INFORMATION
  Report Type: Spontaneous
  Country: CN (occurrence: CN)
  Receive Date: 20221214
  Receipt Date: 20221214
  Transmission Date: 20230113
  Serious: Yes (Other)
  Sender: FDA-Public Use
  Company Number: CN-PFIZER INC-PV202200121772

PATIENT
  Age: 12 Month
  Sex: Male
  Weight: 8.5 kg

DRUGS (2)
  1. AMPICILLIN SODIUM\SULBACTAM SODIUM [Suspect]
     Active Substance: AMPICILLIN SODIUM\SULBACTAM SODIUM
     Indication: Pneumonia
     Dosage: 0.65 G, 2X/DAY
     Route: 041
     Dates: start: 20221130, end: 20221130
  2. SODIUM CHLORIDE [Concomitant]
     Active Substance: SODIUM CHLORIDE
     Indication: Vehicle solution use
     Dosage: 50 ML, 2X/DAY
     Route: 041
     Dates: start: 20221130, end: 20221130

REACTIONS (3)
  - Rash erythematous [Recovered/Resolved]
  - Dysphoria [Recovered/Resolved]
  - Hyperhidrosis [Recovered/Resolved]

NARRATIVE: CASE EVENT DATE: 20221130
